FAERS Safety Report 7014153-2 (Version None)
Quarter: 2010Q3

REPORT INFORMATION
  Report Type: 
  Country: None (occurrence: None)
  Receive Date: 20100927
  Receipt Date: 20100913
  Transmission Date: 20110219
  Serious: Yes (Other)
  Sender: FDA-Public Use
  Company Number: US-JNJFOC-20100904933

PATIENT

DRUGS (1)
  1. DOXIL [Suspect]
     Indication: BREAST CANCER METASTATIC
     Dosage: 2 CYCLES
     Route: 042

REACTIONS (2)
  - ASCITES [None]
  - HEPATIC NEOPLASM [None]
